FAERS Safety Report 10025442 (Version 3)
Quarter: 2014Q2

REPORT INFORMATION
  Report Type: Spontaneous
  Country: US (occurrence: None)
  Receive Date: 20140314
  Receipt Date: 20140415
  Transmission Date: 20141212
  Serious: Yes (Hospitalization)
  Sender: FDA-Public Use
  Company Number: AUR-APL-2014-02446

PATIENT
  Age: 72 Year
  Sex: Female
  Weight: 68.04 kg

DRUGS (3)
  1. AMOXICILLIN+CLAVULANIC ACID [Suspect]
     Indication: PNEUMONIA
     Dosage: 2 DOSAGE FORMS (1 DOSAGE FORMS, 2 IN 1 D)
     Route: 048
     Dates: start: 20140104, end: 20140112
  2. LEVOTHYROXINE (LEVOTHYROXINE) [Concomitant]
  3. HYDROMET (ALDORIL) [Concomitant]

REACTIONS (6)
  - Hypersensitivity [None]
  - Urticaria [None]
  - Swelling face [None]
  - Eye swelling [None]
  - Blood pressure decreased [None]
  - Pyrexia [None]
